FAERS Safety Report 15210905 (Version 1)
Quarter: 2018Q3

REPORT INFORMATION
  Report Type: Spontaneous
  Country: US (occurrence: US)
  Receive Date: 20180728
  Receipt Date: 20180728
  Transmission Date: 20181010
  Serious: Yes (Hospitalization, Other)
  Sender: FDA-Public Use
  Company Number: US-SA-2018SA173342

PATIENT
  Age: 82 Year
  Sex: Female

DRUGS (1)
  1. LANTUS SOLOSTAR [Suspect]
     Active Substance: INSULIN GLARGINE
     Indication: TYPE 2 DIABETES MELLITUS
     Dosage: 20 IU, QD

REACTIONS (6)
  - Blood glucose increased [Unknown]
  - Device malfunction [Unknown]
  - Dysarthria [Unknown]
  - Gallbladder disorder [Unknown]
  - Accident [Unknown]
  - Chest pain [Unknown]

NARRATIVE: CASE EVENT DATE: 2016
